FAERS Safety Report 5986271-9 (Version None)
Quarter: 2008Q4

REPORT INFORMATION
  Report Type: 
  Country: None (occurrence: None)
  Receive Date: 20081209
  Receipt Date: 20081129
  Transmission Date: 20090506
  Serious: Yes (Hospitalization)
  Sender: FDA-Public Use
  Company Number: JP-BRISTOL-MYERS SQUIBB COMPANY-14430912

PATIENT
  Age: 61 Year
  Sex: Male
  Weight: 54 kg

DRUGS (10)
  1. ERBITUX [Suspect]
     Indication: RECTAL CANCER
     Dosage: RECEIVED SECOND INF ON 26NOV08 250 MG/M2 IV
     Route: 041
     Dates: start: 20081105
  2. IRINOTECAN HCL [Suspect]
     Indication: RECTAL CANCER
     Dosage: SECONF INF GIVEN ON 26NOV08 WITH REDUCED DOSE OF TO 120MG/M2
     Route: 042
     Dates: start: 20081105
  3. CHLOR-TRIMETON [Concomitant]
     Indication: PREMEDICATION
     Dosage: FORM = INJ. EVERY TIME AT ERBITUX INFUSION
     Route: 042
     Dates: start: 20081105
  4. DECADRON [Concomitant]
     Indication: PREMEDICATION
     Dosage: FORM = INJ. ALSO TAKEN 8MG VIA ORAL. EVERY TIME AT ERBITUX INF
     Route: 042
     Dates: start: 20081105
  5. ZANTAC [Concomitant]
     Indication: PREMEDICATION
     Dosage: EVERY TIME AT ERBITIX INF
     Route: 042
     Dates: start: 20081105
  6. KYTRIL [Concomitant]
     Indication: ANTIEMETIC SUPPORTIVE CARE
     Dosage: FORM = INJ. EVERY TIME AT ERBITIX INF. 2 MG;ORALLY 1 DAY AFTER AND 2 DAYS AFTER ERBITUX INF
     Route: 042
     Dates: start: 20081105
  7. PRIMPERAN TAB [Concomitant]
     Dosage: FORM = TABS. 1 DAY AFTER AND 2 DAYS AFTER ERBITUX INF
     Route: 048
     Dates: start: 20081101
  8. NOVAMIN [Concomitant]
     Dosage: FORM = TABS. 1 DAY AFTER AND 2 DAYS AFTER ERBITUX INF
     Route: 048
     Dates: start: 20081101
  9. PURSENNID [Concomitant]
     Dosage: FORM = TABS. 1 DAY AFTER ERBITUX INF
     Route: 048
     Dates: start: 20081101
  10. NEUTROGIN [Concomitant]
     Dosage: FORM = INJ
     Route: 058
     Dates: start: 20081114, end: 20081117

REACTIONS (2)
  - ANOREXIA [None]
  - NAUSEA [None]
